FAERS Safety Report 5536097-5 (Version None)
Quarter: 2007Q4

REPORT INFORMATION
  Report Type: 
  Country: None (occurrence: None)
  Receive Date: 20071206
  Receipt Date: 20071127
  Transmission Date: 20080405
  Serious: Yes (Hospitalization)
  Sender: FDA-Public Use
  Company Number: JP-SANOFI-SYNTHELABO-A01200713697

PATIENT
  Sex: Male

DRUGS (14)
  1. TPN [Concomitant]
     Indication: NUTRITIONAL SUPPORT
     Route: 048
     Dates: start: 20071126, end: 20071127
  2. NON-PYRINE COLD PREPARATION [Concomitant]
     Indication: NASOPHARYNGITIS
     Route: 048
     Dates: start: 20071126, end: 20071127
  3. SERRAPEPTASE [Concomitant]
     Indication: NASOPHARYNGITIS
     Route: 048
     Dates: start: 20071119, end: 20071126
  4. IRSOGLADINE MALEATE [Concomitant]
     Indication: PROPHYLAXIS AGAINST GASTROINTESTINAL ULCER
     Route: 048
     Dates: start: 20071015, end: 20071112
  5. INDISETRON HYDROCHLORIDE [Concomitant]
     Indication: PROPHYLAXIS OF NAUSEA AND VOMITING
     Route: 048
     Dates: start: 20070930, end: 20071115
  6. GRANISETRON  HCL [Concomitant]
     Indication: PROPHYLAXIS OF NAUSEA AND VOMITING
     Route: 042
     Dates: start: 20070929, end: 20071112
  7. DEXAMETHASONE TAB [Concomitant]
     Indication: PROPHYLAXIS
     Route: 042
     Dates: start: 20070929, end: 20071112
  8. BROTIZOLAM [Concomitant]
     Indication: INSOMNIA
     Route: 048
     Dates: start: 20070926
  9. SENNOSIDE [Concomitant]
     Indication: LAXATIVE SUPPORTIVE CARE
     Route: 048
     Dates: start: 20070926, end: 20071001
  10. SODIUM ALGINATE [Concomitant]
     Indication: PROPHYLAXIS AGAINST GASTROINTESTINAL ULCER
     Route: 048
     Dates: start: 20070907, end: 20070920
  11. SODIUM ALGINATE [Concomitant]
     Route: 048
     Dates: start: 20070921, end: 20071015
  12. TEGAFUR_GIMERACIL_OTERACIL POTASSIUM [Concomitant]
     Route: 048
     Dates: start: 20070929, end: 20071126
  13. OXALIPLATIN [Suspect]
     Indication: GASTRIC CANCER
     Route: 042
     Dates: start: 20071112, end: 20071112
  14. OMEPRAZOLE [Concomitant]
     Indication: HYPERCHLORHYDRIA
     Route: 048
     Dates: start: 20070907, end: 20071112

REACTIONS (1)
  - PREPYLORIC STENOSIS [None]
